FAERS Safety Report 6139316-X (Version None)
Quarter: 2009Q2

REPORT INFORMATION
  Report Type: 
  Country: None (occurrence: None)
  Receive Date: 20090401
  Receipt Date: 20090320
  Transmission Date: 20091009
  Serious: Yes (Death, Life-Threatening)
  Sender: FDA-Public Use
  Company Number: ES-PFIZER INC-2009165095

PATIENT

DRUGS (7)
  1. VORICONAZOLE [Suspect]
     Dosage: 400 MG, 2X/DAY
     Route: 042
     Dates: start: 20090119, end: 20090119
  2. MERONEM [Concomitant]
     Dosage: UNK
     Route: 042
     Dates: start: 20090105, end: 20090125
  3. TEICOPLANIN [Concomitant]
     Route: 042
     Dates: start: 20090113, end: 20090120
  4. ZOVIRAX [Concomitant]
     Route: 048
     Dates: start: 20081226, end: 20090120
  5. METAMIZOLE MAGNESIUM [Concomitant]
     Dates: start: 20090105, end: 20090120
  6. LORAZEPAM [Concomitant]
     Route: 048
     Dates: start: 20090107, end: 20090120
  7. OMEPRAZOLE [Concomitant]
     Route: 048
     Dates: start: 20081226, end: 20090120

REACTIONS (1)
  - HEPATITIS [None]
